FAERS Safety Report 19830091 (Version 1)
Quarter: 2021Q3

REPORT INFORMATION
  Report Type: Report from Study
  Country: US (occurrence: US)
  Receive Date: 20210915
  Receipt Date: 20210915
  Transmission Date: 20211014
  Serious: Yes (Death, Other)
  Sender: FDA-Public Use
  Company Number: US-SUN PHARMACEUTICAL INDUSTRIES LTD-2021R1-311030

PATIENT
  Age: 63 Year
  Sex: Male

DRUGS (2)
  1. COTRIMOXAZOLE [Suspect]
     Active Substance: SULFAMETHOXAZOLE\TRIMETHOPRIM
     Indication: BRAIN ABSCESS
     Dosage: UNK
     Route: 048
  2. IMIPENEM [Suspect]
     Active Substance: IMIPENEM
     Indication: BRAIN ABSCESS
     Dosage: UNK
     Route: 042

REACTIONS (1)
  - Death [Fatal]
